FAERS Safety Report 10199897 (Version 4)
Quarter: 2014Q2

REPORT INFORMATION
  Report Type: Spontaneous
  Country: US (occurrence: US)
  Receive Date: 20140527
  Receipt Date: 20140610
  Transmission Date: 20141212
  Serious: Yes (Hospitalization)
  Sender: FDA-Public Use
  Company Number: US-EXELIXIS-CABO-13002636

PATIENT
  Age: 15 Year
  Sex: Female
  Weight: 49 kg

DRUGS (2)
  1. COMETRIQ [Suspect]
     Indication: CONNECTIVE TISSUE NEOPLASM
     Dosage: 60 MG, QD
     Route: 048
     Dates: start: 20130424, end: 2014
  2. SCOPOLAMINE [Concomitant]

REACTIONS (17)
  - Small intestinal obstruction [Unknown]
  - Pyrexia [Unknown]
  - Malignant neoplasm progression [Unknown]
  - Abdominal pain upper [Unknown]
  - Pallor [Unknown]
  - Hypothyroidism [Unknown]
  - Photosensitivity reaction [Unknown]
  - Incision site infection [Unknown]
  - Temperature intolerance [Unknown]
  - Decreased appetite [Recovering/Resolving]
  - Fatigue [Unknown]
  - Nausea [Unknown]
  - Hair colour changes [Not Recovered/Not Resolved]
  - Vomiting [Unknown]
  - Weight decreased [Unknown]
  - Neuralgia [Unknown]
  - Off label use [Unknown]
